FAERS Safety Report 13573122 (Version 1)
Quarter: 2017Q2

REPORT INFORMATION
  Report Type: Spontaneous
  Country: US (occurrence: US)
  Receive Date: 20170523
  Receipt Date: 20170523
  Transmission Date: 20170830
  Serious: No
  Sender: FDA-Public Use
  Company Number: US-DRREDDYS-USA/USA/16/0085464

PATIENT
  Age: 31 Year
  Sex: Female
  Weight: 62.14 kg

DRUGS (2)
  1. ZENATANE [Suspect]
     Active Substance: ISOTRETINOIN
     Indication: ACNE
     Route: 048
     Dates: start: 20160720
  2. ZENATANE [Suspect]
     Active Substance: ISOTRETINOIN
     Route: 048
     Dates: start: 20160929, end: 20161120

REACTIONS (2)
  - Dry skin [Unknown]
  - Malaise [Unknown]

NARRATIVE: CASE EVENT DATE: 201611
